FAERS Safety Report 5724443-9 (Version None)
Quarter: 2008Q2

REPORT INFORMATION
  Report Type: 
  Country: None (occurrence: None)
  Receive Date: 20080430
  Receipt Date: 20080424
  Transmission Date: 20081010
  Serious: Yes (Other)
  Sender: FDA-Public Use
  Company Number: US-ALLERGAN-0803285US

PATIENT
  Sex: Female
  Weight: 51.701 kg

DRUGS (11)
  1. SANCTURA XR [Suspect]
     Indication: HYPERTONIC BLADDER
     Dosage: 60 MG, QD
     Route: 048
     Dates: start: 20080212, end: 20080325
  2. COMTAN [Concomitant]
     Dosage: ONE, TID
  3. FORTICAL SPRAY [Concomitant]
     Dosage: 200/ACT DAILY
     Route: 045
  4. CARB/LEVO ER [Concomitant]
     Dosage: 50/200 ONE, TID
  5. ANAGRELIDE HCL [Concomitant]
     Dosage: ONE, QD
  6. PROPO-N/APAP [Concomitant]
     Dosage: 100-650 TAB, ONE
  7. CALCIUM [Concomitant]
     Dosage: ONE, BID
  8. MULTI-VITAMIN [Concomitant]
     Dosage: ONE, QD
  9. ACETAMINOPHEN [Concomitant]
     Dosage: TWO, QID
  10. ARTIFICIAL TEARS [Concomitant]
     Dosage: UNK, PRN
  11. ASPIRIN [Concomitant]
     Dosage: 1, QD

REACTIONS (2)
  - HALLUCINATION [None]
  - VISUAL DISTURBANCE [None]
